FAERS Safety Report 14509758 (Version 1)
Quarter: 2018Q1

REPORT INFORMATION
  Report Type: Spontaneous
  Country: US (occurrence: US)
  Receive Date: 20180209
  Receipt Date: 20180209
  Transmission Date: 20180509
  Serious: No
  Sender: FDA-Public Use
  Company Number: US-PFIZER INC-2018055347

PATIENT
  Age: 39 Year
  Sex: Male

DRUGS (1)
  1. GABAPENTIN. [Suspect]
     Active Substance: GABAPENTIN
     Indication: NEUROPATHY PERIPHERAL
     Dosage: 850MG TABLETS BY MOUTH 5 TIMES DAILY
     Route: 048
     Dates: start: 2009

REACTIONS (4)
  - Somnolence [Unknown]
  - Product use issue [Unknown]
  - Overdose [Unknown]
  - Product use in unapproved indication [Unknown]
